FAERS Safety Report 23326729 (Version 6)
Quarter: 2024Q4

REPORT INFORMATION
  Report Type: Spontaneous
  Country: US (occurrence: US)
  Receive Date: 20231221
  Receipt Date: 20241226
  Transmission Date: 20250115
  Serious: No
  Sender: PFIZER
  Company Number: US-PFIZER INC-PV202300205887

PATIENT
  Age: 88 Year
  Sex: Female
  Weight: 75.737 kg

DRUGS (2)
  1. IBRANCE [Suspect]
     Active Substance: PALBOCICLIB
     Indication: Breast cancer female
     Dosage: 100 MG
  2. IBRANCE [Suspect]
     Active Substance: PALBOCICLIB
     Dosage: 100 MG, CYCLIC (TAKE 1 TABLET FOR 21 DAYS ON 7 DAYS OFF)

REACTIONS (2)
  - Weight abnormal [Unknown]
  - Neoplasm progression [Unknown]
